FAERS Safety Report 7135906-6 (Version None)
Quarter: 2010Q4

REPORT INFORMATION
  Report Type: 
  Country: None (occurrence: None)
  Receive Date: 20101204
  Receipt Date: 20101118
  Transmission Date: 20110411
  Serious: Yes (Hospitalization)
  Sender: FDA-Public Use
  Company Number: AT-BAYER-201047848GPV

PATIENT

DRUGS (14)
  1. NEXAVAR [Suspect]
     Route: 048
     Dates: start: 20100316, end: 20100317
  2. NEXAVAR [Suspect]
     Route: 048
  3. LEGALON [Concomitant]
     Dosage: DAILY DOSE 70 MG
     Route: 065
     Dates: start: 20100208
  4. PANTOLOC [Concomitant]
     Dosage: DAILY DOSE 40 MG
     Route: 065
     Dates: start: 20100208
  5. UROSIN [Concomitant]
     Dosage: DAILY DOSE 300 MG
     Route: 065
     Dates: start: 20100208
  6. HEPA MERZ / ORNITHINASPARTAT [Concomitant]
     Dosage: DAILY DOSE 9 G
     Route: 065
     Dates: start: 20100208
  7. NEUROBION FORTE / THIAMIN DISULFID [NEUROBION (CYANOCOBALAMIN,PYRIDOXI [Concomitant]
     Dosage: DAILY DOSE 600 MG
     Route: 065
     Dates: start: 20100208
  8. SYMBICORT [Concomitant]
     Dosage: DAILY DOSE 4 PUFF(S)
     Route: 065
     Dates: start: 20100208
  9. NEURONTIN [Concomitant]
     Dosage: DAILY DOSE 300 MG
     Route: 065
     Dates: start: 20100208
  10. LASILACTON [Concomitant]
     Dosage: 20/50 MG
     Route: 065
     Dates: start: 20100402
  11. NOVALGIN [Concomitant]
     Dosage: DAILY DOSE 60 GTT
     Route: 065
     Dates: start: 20100402
  12. CLOTRIMAZOLE [Concomitant]
     Route: 065
     Dates: start: 20100402
  13. TAVANIC [Concomitant]
     Dosage: DAILY DOSE 500 MG
     Route: 065
     Dates: start: 20100409, end: 20100415
  14. CEFTRIAXON [Concomitant]
     Dosage: DAILY DOSE 6 G
     Route: 065
     Dates: start: 20100402, end: 20100409

REACTIONS (2)
  - SCROTAL ULCER [None]
  - SKIN ULCER HAEMORRHAGE [None]
